FAERS Safety Report 9234570 (Version 1)
Quarter: 2013Q2

REPORT INFORMATION
  Report Type: Spontaneous
  Country: US (occurrence: US)
  Receive Date: 20130416
  Receipt Date: 20130416
  Transmission Date: 20140414
  Serious: No
  Sender: FDA-Public Use
  Company Number: US-B.I. PHARMACEUTICALS,INC./RIDGEFIELD-2013-BI-09289BP

PATIENT
  Age: 6 Year
  Sex: Male

DRUGS (4)
  1. CATAPRES [Suspect]
     Dosage: 0.025 MG
     Route: 048
  2. DAYTRANA [Suspect]
     Route: 062
     Dates: start: 201201
  3. KAPVAY [Suspect]
     Dosage: 0.1 MG
     Dates: start: 20130131, end: 20130207
  4. KAPVAY [Suspect]
     Dosage: 0.2 MG
     Dates: start: 20130208

REACTIONS (3)
  - Anger [Not Recovered/Not Resolved]
  - Abnormal behaviour [Not Recovered/Not Resolved]
  - Somnolence [Not Recovered/Not Resolved]
